FAERS Safety Report 5781566-6 (Version None)
Quarter: 2008Q2

REPORT INFORMATION
  Report Type: 
  Country: None (occurrence: None)
  Receive Date: 20080623
  Receipt Date: 20070705
  Transmission Date: 20081010
  Serious: No
  Sender: FDA-Public Use
  Company Number: US-ASTRAZENECA-2007UW08341

PATIENT
  Age: 50 Year
  Sex: Female
  Weight: 47.6 kg

DRUGS (3)
  1. RHINOCORT [Suspect]
     Indication: DYSPHAGIA
     Dosage: 2 PUFFS EACH SIDE ONCE A DAY
     Route: 045
     Dates: start: 20040101
  2. RHINOCORT [Suspect]
     Indication: HYPERSENSITIVITY
     Dosage: 2 PUFFS EACH SIDE ONCE A DAY
     Route: 045
     Dates: start: 20040101
  3. CLARITIN [Concomitant]

REACTIONS (3)
  - PHARYNGOLARYNGEAL PAIN [None]
  - SINUSITIS [None]
  - THERAPEUTIC RESPONSE UNEXPECTED [None]
